FAERS Safety Report 6367672-6 (Version None)
Quarter: 2009Q3

REPORT INFORMATION
  Report Type: 
  Country: None (occurrence: None)
  Receive Date: 20090921
  Receipt Date: 20090910
  Transmission Date: 20100115
  Serious: Yes (Other)
  Sender: FDA-Public Use
  Company Number: US-AVENTIS-200918077US

PATIENT
  Sex: Female

DRUGS (2)
  1. LANTUS [Suspect]
     Route: 058
     Dates: start: 20040101
  2. OPTICLIK GREY [Suspect]
     Dates: start: 20040101

REACTIONS (3)
  - DRUG DOSE OMISSION [None]
  - IRRITABILITY [None]
  - SUICIDAL IDEATION [None]
